FAERS Safety Report 21387630 (Version 3)
Quarter: 2022Q4

REPORT INFORMATION
  Report Type: Spontaneous
  Country: AU (occurrence: AU)
  Receive Date: 20220928
  Receipt Date: 20221014
  Transmission Date: 20230113
  Serious: Yes (Hospitalization, Other)
  Sender: FDA-Public Use
  Company Number: AU-PFIZER INC-PV202200065774

PATIENT
  Age: 27 Year
  Sex: Male
  Weight: 90 kg

DRUGS (22)
  1. CLOZAPINE [Suspect]
     Active Substance: CLOZAPINE
     Indication: Schizoaffective disorder
     Dosage: 500 MG, DAILY
     Dates: start: 2001
  2. CLOZAPINE [Suspect]
     Active Substance: CLOZAPINE
     Dosage: 12.5 MG
     Dates: start: 20220704, end: 20220704
  3. LIPITOR [Suspect]
     Active Substance: ATORVASTATIN CALCIUM
     Indication: Blood cholesterol increased
     Dosage: 80 MG, TABLE, 1 DOSE DAILY IN THE MORNING
     Route: 048
  4. BREXPIPRAZOLE [Concomitant]
     Active Substance: BREXPIPRAZOLE
     Dosage: 4 MG, DAILY
     Route: 048
  5. FLUOXETINE [Concomitant]
     Active Substance: FLUOXETINE HYDROCHLORIDE
     Dosage: 40 MG, DAILY
     Route: 048
  6. LITHIUM [Concomitant]
     Active Substance: LITHIUM
     Dosage: 750 MG, MANE, WITH OR AFTER FOOD
     Route: 048
  7. ZIPRASIDONE [Concomitant]
     Active Substance: ZIPRASIDONE
     Dosage: 40 MG, 2X/DAY
     Route: 048
  8. ZIPRASIDONE [Concomitant]
     Active Substance: ZIPRASIDONE
     Dosage: 80 MG, 2X/DAY
     Route: 048
  9. PERINDOPRIL [Concomitant]
     Active Substance: PERINDOPRIL
     Dosage: 10 MG, DAILY
     Route: 048
  10. PERINDOPRIL [Concomitant]
     Active Substance: PERINDOPRIL
     Dosage: UNK
     Route: 048
     Dates: end: 20220706
  11. PERINDOPRIL [Concomitant]
     Active Substance: PERINDOPRIL
     Dosage: 2.5 MG
     Route: 048
  12. CARVEDILOL [Concomitant]
     Active Substance: CARVEDILOL
     Dosage: 75 MG, DAILY (25MG MANE + 50MG NOCTE)
     Route: 048
  13. CARVEDILOL [Concomitant]
     Active Substance: CARVEDILOL
     Dosage: UNK
     Dates: end: 20220706
  14. CARVEDILOL [Concomitant]
     Active Substance: CARVEDILOL
     Dosage: 12.5 MG, 2X/DAY
  15. EMPAGLIFLOZIN [Concomitant]
     Active Substance: EMPAGLIFLOZIN
     Indication: Type 2 diabetes mellitus
     Dosage: 10 MG, MANE, DAILY
     Route: 048
  16. GLICLAZIDE [Concomitant]
     Active Substance: GLICLAZIDE
     Indication: Type 2 diabetes mellitus
     Dosage: 120 MG, MANE
     Route: 048
  17. FENOFIBRATE [Concomitant]
     Active Substance: FENOFIBRATE
     Indication: Blood cholesterol increased
     Dosage: 145 MG, NOCTE, TAKE WITH FOOD
     Route: 048
  18. METFORMIN [Concomitant]
     Active Substance: METFORMIN HYDROCHLORIDE
     Indication: Type 2 diabetes mellitus
     Dosage: 1000 MG, MANE, SWALLOW WHOLE DO NOT CRUSH OR CREW
     Route: 048
  19. METFORMIN [Concomitant]
     Active Substance: METFORMIN HYDROCHLORIDE
     Dosage: 1 G, 2X/DAY
  20. SEMAGLUTIDE [Concomitant]
     Active Substance: SEMAGLUTIDE
     Indication: Type 2 diabetes mellitus
     Dosage: 1 MG, WEEKLY (ON WEDNESDAYS), 1 DOSE
     Route: 058
     Dates: start: 20220324
  21. SEMAGLUTIDE [Concomitant]
     Active Substance: SEMAGLUTIDE
     Dosage: 1 MG(4 DOSES)
     Route: 058
     Dates: start: 20220614
  22. SEROQUEL [Concomitant]
     Active Substance: QUETIAPINE FUMARATE
     Dosage: 25 MG, AS NEEDED
     Route: 048

REACTIONS (34)
  - Cardiomyopathy [Unknown]
  - Electrocardiogram ST segment elevation [Unknown]
  - Electrocardiogram T wave inversion [Unknown]
  - Diabetes mellitus inadequate control [Unknown]
  - Electrocardiogram ST-T segment abnormal [Recovering/Resolving]
  - Electrocardiogram QRS complex prolonged [Unknown]
  - Electrocardiogram QT prolonged [Unknown]
  - Myocardial infarction [Unknown]
  - Hypotension [Recovering/Resolving]
  - Blood pressure systolic decreased [Recovering/Resolving]
  - Hallucination, auditory [Unknown]
  - Left ventricular hypertrophy [Unknown]
  - Left ventricular dysfunction [Unknown]
  - Ventricular internal diameter abnormal [Recovering/Resolving]
  - Ejection fraction decreased [Recovering/Resolving]
  - Sinus tachycardia [Unknown]
  - Drug hypersensitivity [Unknown]
  - Glycosylated haemoglobin increased [Unknown]
  - Blood triglycerides increased [Unknown]
  - Blood sodium decreased [Recovering/Resolving]
  - Blood glucose increased [Unknown]
  - Dizziness [Unknown]
  - Hyperhidrosis [Unknown]
  - Dyspnoea [Unknown]
  - Body temperature increased [Unknown]
  - Blood lactic acid increased [Recovering/Resolving]
  - Haemoglobin decreased [Unknown]
  - Haematocrit decreased [Unknown]
  - Mean cell volume decreased [Unknown]
  - Mean cell haemoglobin decreased [Unknown]
  - Anion gap increased [Unknown]
  - Glomerular filtration rate decreased [Unknown]
  - QRS axis abnormal [Unknown]
  - Left atrial dilatation [Unknown]

NARRATIVE: CASE EVENT DATE: 20010101
